FAERS Safety Report 5671842-X (Version None)
Quarter: 2008Q1

REPORT INFORMATION
  Report Type: 
  Country: None (occurrence: None)
  Receive Date: 20080314
  Receipt Date: 20080304
  Transmission Date: 20080703
  Serious: Yes (Other)
  Sender: FDA-Public Use
  Company Number: 2008S1003644

PATIENT
  Age: 4 Year
  Sex: Male

DRUGS (7)
  1. BUSULFAN (BUSULFAN) [Suspect]
     Indication: NEUROBLASTOMA
     Dosage: 16 MG/KG
  2. ETOPOSIDE [Suspect]
     Indication: NEUROBLASTOMA
     Dosage: 60 MG;KG
  3. MELPHALAN (MELPHALAN) [Suspect]
     Indication: NEUROBLASTOMA
     Dosage: 180 MG/M**2
  4. CYCLOPHOSPHAMIDE [Concomitant]
  5. PIRARUBICIN (PIRARUBICIN) [Concomitant]
  6. VINCRISTINE [Concomitant]
  7. CISPLATIN [Concomitant]

REACTIONS (14)
  - ABDOMINAL PAIN [None]
  - ASCITES [None]
  - BILE DUCT NECROSIS [None]
  - BONE MARROW DISORDER [None]
  - HAEMATEMESIS [None]
  - HAEMATOCHEZIA [None]
  - HEPATIC FIBROSIS [None]
  - JAUNDICE [None]
  - OESOPHAGEAL VARICES HAEMORRHAGE [None]
  - RETROGRADE PORTAL VEIN FLOW [None]
  - THROMBOCYTOPENIA [None]
  - VANISHING BILE DUCT SYNDROME [None]
  - VENOOCCLUSIVE LIVER DISEASE [None]
  - WEIGHT INCREASED [None]
